FAERS Safety Report 6115593-6 (Version None)
Quarter: 2009Q1

REPORT INFORMATION
  Report Type: 
  Country: None (occurrence: None)
  Receive Date: 20090313
  Receipt Date: 20090305
  Transmission Date: 20090719
  Serious: No
  Sender: FDA-Public Use
  Company Number: GB-PFIZER INC-2009166982

PATIENT

DRUGS (7)
  1. LIPITOR [Suspect]
     Indication: TYPE IIA HYPERLIPIDAEMIA
     Dosage: UNK
     Route: 048
     Dates: start: 20000601
  2. SIMVASTATIN [Suspect]
     Indication: TYPE IIA HYPERLIPIDAEMIA
     Dosage: UNK
     Dates: start: 20060901, end: 20061201
  3. MAGNESIUM HYDROXIDE TAB [Concomitant]
  4. SANDOCAL [Concomitant]
     Dosage: UNK
     Route: 048
  5. CLENIL [Concomitant]
     Dosage: UNK
     Route: 055
  6. IPRATROPIUM BROMIDE [Concomitant]
     Dosage: UNK
     Route: 055
  7. FLUTICASONE [Concomitant]
     Dosage: UNK
     Route: 045

REACTIONS (4)
  - BALANCE DISORDER [None]
  - FALL [None]
  - HYPOAESTHESIA [None]
  - SENSORY DISTURBANCE [None]
